FAERS Safety Report 9963543 (Version 1)
Quarter: 2014Q1

REPORT INFORMATION
  Report Type: Report from Study
  Country: US (occurrence: US)
  Receive Date: 20140305
  Receipt Date: 20140305
  Transmission Date: 20141002
  Serious: No
  Sender: FDA-Public Use
  Company Number: US-ABBVIE-13P-163-1120619-00

PATIENT
  Sex: Female

DRUGS (3)
  1. HUMIRA [Suspect]
     Indication: PSORIASIS
     Dates: start: 20130111, end: 201303
  2. DIALANTIN [Concomitant]
     Indication: CONVULSION
  3. LOVASTATIN [Concomitant]
     Indication: BLOOD CHOLESTEROL

REACTIONS (5)
  - Fatigue [Unknown]
  - Malaise [Unknown]
  - Discomfort [Unknown]
  - Adverse drug reaction [Unknown]
  - Myalgia [Unknown]
